FAERS Safety Report 6376371-6 (Version None)
Quarter: 2009Q3

REPORT INFORMATION
  Report Type: 
  Country: None (occurrence: None)
  Receive Date: 20090918
  Receipt Date: 20090903
  Transmission Date: 20100115
  Serious: Yes (Life-Threatening)
  Sender: FDA-Public Use
  Company Number: 1000008804

PATIENT
  Age: 73 Year
  Sex: Male
  Weight: 71 kg

DRUGS (5)
  1. MEMANTINE HCL [Suspect]
     Indication: DEMENTIA
     Dosage: 5 MG (5 MG, 1 IN 1 D), ORAL
     Route: 048
     Dates: start: 20090818, end: 20090821
  2. RISPERDAL [Concomitant]
  3. THYRAX (TABLETS) [Concomitant]
  4. REMERON (30 MILLIGRAM, TABLETS) [Concomitant]
  5. OXAZEPAM [Concomitant]

REACTIONS (6)
  - BLOOD PRESSURE FLUCTUATION [None]
  - DEPRESSED LEVEL OF CONSCIOUSNESS [None]
  - DYSPHAGIA [None]
  - HYPOTENSION [None]
  - INCONTINENCE [None]
  - SALIVARY HYPERSECRETION [None]
